FAERS Safety Report 4619240-1 (Version None)
Quarter: 2005Q1

REPORT INFORMATION
  Report Type: 
  Country: None (occurrence: None)
  Receive Date: 20050325
  Receipt Date: 20040713
  Transmission Date: 20050727
  Serious: Yes (Disabling, Other)
  Sender: FDA-Public Use
  Company Number: US-BRISTOL-MYERS SQUIBB COMPANY-12639720

PATIENT
  Age: 80 Year
  Sex: Female
  Weight: 67 kg

DRUGS (11)
  1. TEQUIN [Suspect]
     Indication: BRONCHITIS
     Route: 048
     Dates: start: 20040630, end: 20040707
  2. TEQUIN [Suspect]
     Indication: BRONCHOPNEUMONIA
     Route: 048
     Dates: start: 20040630, end: 20040707
  3. BEXTRA [Concomitant]
  4. LIPITOR [Concomitant]
  5. HYZAAR [Concomitant]
  6. NORVASC [Concomitant]
  7. ASPIRIN [Concomitant]
  8. LIDOCAINE [Concomitant]
     Indication: TENDONITIS
     Route: 062
     Dates: end: 20040705
  9. PROZAC [Concomitant]
  10. PLAVIX [Concomitant]
  11. FEOSOL [Concomitant]

REACTIONS (7)
  - ARTHRALGIA [None]
  - BLOOD GLUCOSE INCREASED [None]
  - DIABETES MELLITUS NON-INSULIN-DEPENDENT [None]
  - DRUG INEFFECTIVE [None]
  - PERICARDITIS [None]
  - STAPHYLOCOCCAL INFECTION [None]
  - WOUND INFECTION [None]
